FAERS Safety Report 5353823-9 (Version None)
Quarter: 2007Q2

REPORT INFORMATION
  Report Type: 
  Country: None (occurrence: None)
  Receive Date: 20070521
  Receipt Date: 20070201
  Transmission Date: 20071010
  Serious: No
  Sender: FDA-Public Use
  Company Number: WAES 0702USA00461

PATIENT
  Age: 56 Year
  Sex: Female
  Weight: 87.5442 kg

DRUGS (13)
  1. JANUVIA [Suspect]
     Indication: DIABETES MELLITUS NON-INSULIN-DEPENDENT
     Dosage: 50 MG DAILY PO
     Route: 048
     Dates: start: 20061210
  2. ACTOS [Concomitant]
  3. COREG [Concomitant]
  4. LEXAPRO [Concomitant]
  5. NIASPAN [Concomitant]
  6. PLAVIX [Concomitant]
  7. SYNTHROID [Concomitant]
  8. VICODIN [Concomitant]
  9. VYTORIN [Concomitant]
  10. WELLBUTRIN XL [Concomitant]
  11. ASPIRIN [Concomitant]
  12. DILTIAZEM HYDROCHLORIDE [Concomitant]
  13. HYDROCHLOROTHIAZIDE (+) LISINOPR [Concomitant]

REACTIONS (1)
  - NASOPHARYNGITIS [None]
